FAERS Safety Report 5016774-5 (Version None)
Quarter: 2006Q2

REPORT INFORMATION
  Report Type: 
  Country: None (occurrence: None)
  Receive Date: 20060602
  Receipt Date: 20060515
  Transmission Date: 20061013
  Serious: Yes (Other)
  Sender: FDA-Public Use
  Company Number: 2006UW09982

PATIENT
  Age: 76 Year
  Sex: Male
  Weight: 98.2 kg

DRUGS (4)
  1. CRESTOR [Suspect]
     Indication: BLOOD CHOLESTEROL INCREASED
     Route: 048
     Dates: start: 20051117
  2. VASERETIC [Suspect]
     Dosage: 10/12.5 MG
     Dates: start: 20060405
  3. LICORICE ROOT [Concomitant]
  4. ATACAND HCT [Concomitant]
     Dates: start: 20051117, end: 20060405

REACTIONS (3)
  - BODY FAT DISORDER [None]
  - GYNAECOMASTIA [None]
  - HAIR GROWTH ABNORMAL [None]
